FAERS Safety Report 8374939-9 (Version None)
Quarter: 2012Q2

REPORT INFORMATION
  Report Type: 
  Country: None (occurrence: None)
  Receive Date: 20120521
  Receipt Date: 20120511
  Transmission Date: 20120825
  Serious: Yes (Other)
  Sender: FDA-Public Use
  Company Number: US-ROCHE-1020351

PATIENT
  Sex: Male
  Weight: 110.32 kg

DRUGS (6)
  1. WARFARIN SODIUM [Concomitant]
     Route: 048
  2. MABTHERA [Suspect]
     Indication: RHEUMATOID ARTHRITIS
     Route: 042
     Dates: start: 20111122, end: 20111208
  3. IMURAN [Concomitant]
     Route: 048
  4. SALAGEN [Concomitant]
     Route: 048
  5. FOLIC ACID [Concomitant]
     Route: 048
  6. PREDNISONE [Concomitant]
     Route: 048

REACTIONS (1)
  - VISION BLURRED [None]
